FAERS Safety Report 24724520 (Version 3)
Quarter: 2025Q1

REPORT INFORMATION
  Report Type: Report from Study
  Country: US (occurrence: US)
  Receive Date: 20241212
  Receipt Date: 20250304
  Transmission Date: 20250409
  Serious: Yes (Hospitalization, Other)
  Sender: ACADIA PHARMACEUTICALS
  Company Number: US-ACADIA PHARMACEUTICALS INC.-ACA-2024-TRF-007961

PATIENT
  Sex: Female

DRUGS (1)
  1. DAYBUE [Suspect]
     Active Substance: TROFINETIDE
     Indication: Rett syndrome
     Dosage: 40 MILLILITER, BID
     Route: 048
     Dates: start: 20241203

REACTIONS (7)
  - Hepatitis [Not Recovered/Not Resolved]
  - Pallor [Not Recovered/Not Resolved]
  - Pain [Not Recovered/Not Resolved]
  - Urinary tract infection [Unknown]
  - Adverse drug reaction [Unknown]
  - Influenza [Not Recovered/Not Resolved]
  - Diarrhoea [Unknown]
